FAERS Safety Report 13750412 (Version 1)
Quarter: 2017Q3

REPORT INFORMATION
  Report Type: Spontaneous
  Country: US (occurrence: US)
  Receive Date: 20170713
  Receipt Date: 20170713
  Transmission Date: 20171127
  Serious: No
  Sender: FDA-Public Use
  Company Number: US-ASTELLAS-2016US032307

PATIENT
  Age: 78 Year
  Sex: Female

DRUGS (1)
  1. MYRBETRIQ [Suspect]
     Active Substance: MIRABEGRON
     Indication: POLLAKIURIA
     Route: 065

REACTIONS (4)
  - Nocturia [Unknown]
  - Urinary incontinence [Unknown]
  - Pollakiuria [Unknown]
  - Drug ineffective [Unknown]
